FAERS Safety Report 12563798 (Version 1)
Quarter: 2016Q3

REPORT INFORMATION
  Report Type: Spontaneous
  Country: US (occurrence: US)
  Receive Date: 20160716
  Receipt Date: 20160716
  Transmission Date: 20161109
  Serious: Yes (Hospitalization)
  Sender: FDA-Public Use
  Company Number: US-AUROBINDO-AUR-APL-2016-08208

PATIENT
  Age: 81 Year
  Sex: Female

DRUGS (1)
  1. OMEPRAZOLE 40MG [Suspect]
     Active Substance: OMEPRAZOLE
     Indication: DYSPEPSIA
     Dosage: 40 MG, DAILY FOR THREE WEEKS
     Route: 065

REACTIONS (2)
  - Renal impairment [Recovering/Resolving]
  - Tubulointerstitial nephritis [Recovering/Resolving]
